FAERS Safety Report 8340691-6 (Version None)
Quarter: 2012Q2

REPORT INFORMATION
  Report Type: 
  Country: None (occurrence: None)
  Receive Date: 20120507
  Receipt Date: 20120501
  Transmission Date: 20120825
  Serious: Yes (Other)
  Sender: FDA-Public Use
  Company Number: US-CELGENEUS-163-21880-12050259

PATIENT
  Sex: Male
  Weight: 99.154 kg

DRUGS (4)
  1. REVLIMID [Suspect]
     Indication: MULTIPLE MYELOMA
     Dosage: 10 MILLIGRAM
     Route: 048
     Dates: start: 20100601
  2. BACTRIM [Concomitant]
     Route: 065
  3. ACIDOPHILUS [Concomitant]
     Route: 065
  4. COUMADIN [Concomitant]
     Route: 065

REACTIONS (2)
  - FULL BLOOD COUNT DECREASED [None]
  - PATHOLOGICAL FRACTURE [None]
